FAERS Safety Report 9276429 (Version 3)
Quarter: 2013Q4

REPORT INFORMATION
  Report Type: Spontaneous
  Country: BE (occurrence: BE)
  Receive Date: 20130507
  Receipt Date: 20131125
  Transmission Date: 20140711
  Serious: Yes (Life-Threatening)
  Sender: FDA-Public Use
  Company Number: BE-GLAXOSMITHKLINE-B0889749A

PATIENT
  Age: 24 Year
  Sex: Female

DRUGS (4)
  1. LAMICTAL [Suspect]
     Indication: EPILEPSY
     Route: 048
     Dates: start: 2004
  2. KEPPRA [Suspect]
     Indication: EPILEPSY
     Dosage: 3000MG PER DAY
     Route: 048
     Dates: start: 2004
  3. VITAMIN COMPLEX [Concomitant]
     Indication: PREGNANCY
     Dates: start: 20130306
  4. FOLIC ACID [Concomitant]
     Indication: PREGNANCY
     Dates: start: 20130306

REACTIONS (13)
  - Convulsion [Recovered/Resolved]
  - Epilepsy [Recovered/Resolved]
  - Grand mal convulsion [Unknown]
  - Loss of consciousness [Unknown]
  - Speech disorder [Unknown]
  - Clonus [Unknown]
  - Tongue injury [Unknown]
  - Postictal state [Unknown]
  - Disorientation [Unknown]
  - Somnolence [Unknown]
  - Fall [Unknown]
  - Exposure during pregnancy [Unknown]
  - Live birth [Unknown]
